FAERS Safety Report 23272660 (Version 2)
Quarter: 2024Q1

REPORT INFORMATION
  Report Type: Spontaneous
  Country: JP (occurrence: JP)
  Receive Date: 20231207
  Receipt Date: 20240118
  Transmission Date: 20240410
  Serious: Yes (Death, Hospitalization)
  Sender: FDA-Public Use
  Company Number: JP-AMGEN-JPNSP2023216024

PATIENT
  Sex: Male

DRUGS (2)
  1. LUMAKRAS [Suspect]
     Active Substance: SOTORASIB
     Indication: K-ras gene mutation
     Dosage: 960 MILLIGRAM, QD
     Route: 048
     Dates: start: 20231124, end: 20231201
  2. LUMAKRAS [Suspect]
     Active Substance: SOTORASIB
     Indication: Non-small cell lung cancer

REACTIONS (2)
  - Platelet count decreased [Recovering/Resolving]
  - Non-small cell lung cancer [Fatal]

NARRATIVE: CASE EVENT DATE: 20231128
